FAERS Safety Report 17005160 (Version 1)
Quarter: 2019Q4

REPORT INFORMATION
  Report Type: Spontaneous
  Country: US (occurrence: US)
  Receive Date: 20190926
  Receipt Date: 20190926
  Transmission Date: 20200122
  Serious: No
  Sender: FDA-Public Use
  Company Number: None

PATIENT
  Age: 62 Year
  Sex: Female

DRUGS (1)
  1. EPCLUSA [Suspect]
     Active Substance: SOFOSBUVIR\VELPATASVIR
     Indication: HEPATITIS B
     Dosage: 400/100 MG DAILY PO
     Route: 048
     Dates: start: 20190726

REACTIONS (3)
  - Vitreous floaters [None]
  - Photopsia [None]
  - Vision blurred [None]

NARRATIVE: CASE EVENT DATE: 20190916
